FAERS Safety Report 8619983-9 (Version None)
Quarter: 2012Q3

REPORT INFORMATION
  Report Type: 
  Country: None (occurrence: None)
  Receive Date: 20120816
  Receipt Date: 20120816
  Transmission Date: 20120928
  Serious: Yes (Disabling, Other)
  Sender: FDA-Public Use
  Company Number: None

PATIENT
  Age: 25 Year
  Sex: Female
  Weight: 68.0396 kg

DRUGS (1)
  1. MIRENA [Suspect]
     Indication: CONTRACEPTION
     Dosage: FULL TIME/ INSERTED BY DR
     Dates: start: 20080526, end: 20100110

REACTIONS (2)
  - PROGESTERONE DECREASED [None]
  - FOETAL DEATH [None]
